FAERS Safety Report 20475955 (Version 1)
Quarter: 2022Q1

REPORT INFORMATION
  Report Type: Spontaneous
  Country: US (occurrence: None)
  Receive Date: 20220215
  Receipt Date: 20220215
  Transmission Date: 20220423
  Serious: Yes (unspecified)
  Sender: FDA-Public Use
  Company Number: None

PATIENT
  Age: 55 Year
  Sex: Female
  Weight: 73 kg

DRUGS (2)
  1. MAGNESIUM SULFATE [Suspect]
     Active Substance: MAGNESIUM SULFATE
     Indication: Hypomagnesaemia
     Dosage: 50 ML ONCE ?
     Route: 041
  2. Potassium Chloride 10mEq/100ml premix IV [Concomitant]
     Dates: start: 20220214, end: 20220214

REACTIONS (1)
  - Burning sensation [None]

NARRATIVE: CASE EVENT DATE: 20220214
